FAERS Safety Report 11391216 (Version 2)
Quarter: 2015Q3

REPORT INFORMATION
  Report Type: Other
  Country: US (occurrence: US)
  Receive Date: 20150818
  Receipt Date: 20150903
  Transmission Date: 20151125
  Serious: Yes (Other)
  Sender: FDA-Public Use
  Company Number: US-ACORDA-ACO_115336_2015

PATIENT
  Sex: Male
  Weight: 83.9 kg

DRUGS (5)
  1. AMANTADINE [Concomitant]
     Active Substance: AMANTADINE
     Indication: MULTIPLE SCLEROSIS
     Dosage: 100 MG, TID
  2. AMPYRA [Suspect]
     Active Substance: DALFAMPRIDINE
     Indication: GAIT DISTURBANCE
     Dosage: 10 MG, BID
     Route: 048
     Dates: start: 2010
  3. AMPYRA [Suspect]
     Active Substance: DALFAMPRIDINE
     Indication: MULTIPLE SCLEROSIS
  4. AMITRIPTYLINE [Suspect]
     Active Substance: AMITRIPTYLINE
     Indication: MULTIPLE SCLEROSIS
     Dosage: 100 MG, TID
     Route: 048
  5. TRAZODONE [Concomitant]
     Active Substance: TRAZODONE HYDROCHLORIDE
     Indication: MULTIPLE SCLEROSIS
     Dosage: 200 MG, AT BEDTIME

REACTIONS (12)
  - Pulmonary embolism [Recovered/Resolved]
  - Back pain [Unknown]
  - Walking aid user [Unknown]
  - Drug ineffective [Unknown]
  - Coordination abnormal [Unknown]
  - Ataxia [Unknown]
  - Wheelchair user [Unknown]
  - Balance disorder [Unknown]
  - Cerebellar syndrome [Unknown]
  - Pruritus [Unknown]
  - Facial pain [Unknown]
  - Deep vein thrombosis [Unknown]

NARRATIVE: CASE EVENT DATE: 2010
